FAERS Safety Report 8172856-0 (Version None)
Quarter: 2012Q1

REPORT INFORMATION
  Report Type: 
  Country: None (occurrence: None)
  Receive Date: 20120229
  Receipt Date: 20120229
  Transmission Date: 20120608
  Serious: Yes (Death)
  Sender: FDA-Public Use
  Company Number: None

PATIENT
  Sex: Male
  Weight: 82 kg

DRUGS (1)
  1. LEVETIRACETAM [Suspect]
     Indication: CONVULSION PROPHYLAXIS
     Dosage: 500 MG
     Route: 048
     Dates: start: 20120117, end: 20120209

REACTIONS (6)
  - OROPHARYNGEAL BLISTERING [None]
  - CARDIO-RESPIRATORY ARREST [None]
  - EXCORIATION [None]
  - SKIN EXFOLIATION [None]
  - CONVULSION [None]
  - RASH GENERALISED [None]
